FAERS Safety Report 14151215 (Version 4)
Quarter: 2019Q2

REPORT INFORMATION
  Report Type: Report from Study
  Country: SI (occurrence: SI)
  Receive Date: 20171102
  Receipt Date: 20190606
  Transmission Date: 20190711
  Serious: Yes (Death, Hospitalization, Other)
  Sender: FDA-Public Use
  Company Number: SI-AMGEN-SVNNI2016123708

PATIENT
  Age: 69 Year
  Sex: Male

DRUGS (29)
  1. CARFILZOMIB [Suspect]
     Active Substance: CARFILZOMIB
     Dosage: UNK (CYCLE 6)
     Route: 065
     Dates: start: 20160607, end: 20160622
  2. REVLIMID [Concomitant]
     Active Substance: LENALIDOMIDE
     Dosage: UNK
     Dates: start: 20160405, end: 20160420
  3. REVLIMID [Concomitant]
     Active Substance: LENALIDOMIDE
     Dosage: UNK
     Dates: start: 20160503, end: 20160518
  4. DEXAMETHASONE. [Concomitant]
     Active Substance: DEXAMETHASONE
     Dosage: UNK
     Dates: start: 20160202, end: 20160217
  5. CARFILZOMIB [Suspect]
     Active Substance: CARFILZOMIB
     Dosage: UNK (CYCLE 2)
     Route: 065
     Dates: start: 20160202, end: 20160217
  6. CARFILZOMIB [Suspect]
     Active Substance: CARFILZOMIB
     Dosage: UNK (CYCLE 5)
     Route: 065
     Dates: start: 20170131, end: 20170222
  7. CARFILZOMIB [Suspect]
     Active Substance: CARFILZOMIB
     Dosage: UNK (CYCLE 6)
     Route: 065
     Dates: start: 20170228, end: 20170322
  8. REVLIMID [Concomitant]
     Active Substance: LENALIDOMIDE
     Dosage: 25 MG, UNK
     Dates: start: 20160112, end: 20160127
  9. DEXAMETHASONE. [Concomitant]
     Active Substance: DEXAMETHASONE
     Dosage: UNK
     Dates: start: 20161018, end: 20161103
  10. DEXAMETHASONE. [Concomitant]
     Active Substance: DEXAMETHASONE
     Dosage: UNK
     Dates: start: 20170104, end: 20170111
  11. CARFILZOMIB [Suspect]
     Active Substance: CARFILZOMIB
     Dosage: UNK (CYCLE 3)
     Route: 065
     Dates: start: 20160308, end: 20160323
  12. REVLIMID [Concomitant]
     Active Substance: LENALIDOMIDE
     Dosage: UNK
     Dates: start: 20160202, end: 20160217
  13. DEXAMETHASONE. [Concomitant]
     Active Substance: DEXAMETHASONE
     Dosage: UNK
     Dates: start: 20160607, end: 20160622
  14. CARFILZOMIB [Suspect]
     Active Substance: CARFILZOMIB
     Dosage: UNK (CYCLE 2)
     Route: 065
     Dates: start: 20161115, end: 20161122
  15. REVLIMID [Concomitant]
     Active Substance: LENALIDOMIDE
     Dosage: UNK
     Dates: start: 20160308, end: 20160323
  16. DEXAMETHASONE. [Concomitant]
     Active Substance: DEXAMETHASONE
     Dosage: UNK
     Dates: start: 20160503, end: 20160518
  17. CARFILZOMIB [Suspect]
     Active Substance: CARFILZOMIB
     Dosage: UNK (CYCLE 4)
     Route: 065
     Dates: start: 20170104, end: 20170111
  18. FILGRASTIM [Concomitant]
     Active Substance: FILGRASTIM
     Dosage: UNK
  19. DEXAMETHASONE. [Concomitant]
     Active Substance: DEXAMETHASONE
     Dosage: 40 MG, UNK
     Dates: start: 20160112, end: 20160127
  20. CARFILZOMIB [Suspect]
     Active Substance: CARFILZOMIB
     Indication: PLASMA CELL MYELOMA
     Dosage: 27 MILLIGRAM (CYCLE1)
     Route: 065
     Dates: start: 20160112, end: 20160127
  21. CARFILZOMIB [Suspect]
     Active Substance: CARFILZOMIB
     Dosage: UNK (CYCLE 4)
     Route: 065
     Dates: start: 20160405, end: 20160420
  22. CARFILZOMIB [Suspect]
     Active Substance: CARFILZOMIB
     Dosage: UNK (CYCLE 5)
     Route: 065
     Dates: start: 20160503, end: 20160518
  23. DEXAMETHASONE. [Concomitant]
     Active Substance: DEXAMETHASONE
     Dosage: UNK
     Dates: start: 20160308, end: 20160323
  24. DEXAMETHASONE. [Concomitant]
     Active Substance: DEXAMETHASONE
     Dosage: UNK
     Dates: start: 20161115, end: 20161122
  25. ERYTHROPOIETIN [Concomitant]
     Active Substance: ERYTHROPOIETIN
     Dosage: UNK
  26. TRANEX [Concomitant]
     Active Substance: TRANEXAMIC ACID
     Dosage: UNK
  27. CARFILZOMIB [Suspect]
     Active Substance: CARFILZOMIB
     Dosage: UNK (CYCLE 1)
     Route: 065
     Dates: start: 20161018, end: 20161103
  28. CARFILZOMIB [Suspect]
     Active Substance: CARFILZOMIB
     Dosage: UNK (CYCLE 6)
     Route: 065
     Dates: start: 20170328, end: 201707
  29. DEXAMETHASONE. [Concomitant]
     Active Substance: DEXAMETHASONE
     Dosage: UNK
     Dates: start: 20160405, end: 20160420

REACTIONS (9)
  - Acute respiratory distress syndrome [Unknown]
  - Coronary artery stenosis [Unknown]
  - Death [Fatal]
  - Barrett^s oesophagus [Unknown]
  - Oesophageal adenocarcinoma [Unknown]
  - Hemiparesis [Unknown]
  - Cellulitis [Unknown]
  - Respiratory tract infection [Unknown]
  - Pneumonia [Unknown]

NARRATIVE: CASE EVENT DATE: 201602
